FAERS Safety Report 6894035-7 (Version None)
Quarter: 2010Q3

REPORT INFORMATION
  Report Type: 
  Country: None (occurrence: None)
  Receive Date: 20100802
  Receipt Date: 20100720
  Transmission Date: 20110219
  Serious: Yes (Other)
  Sender: FDA-Public Use
  Company Number: AU-JNJFOC-20100704282

PATIENT
  Sex: Female

DRUGS (4)
  1. DURAGESIC-100 [Suspect]
     Indication: PAIN IN EXTREMITY
     Route: 065
  2. DURAGESIC-100 [Suspect]
     Indication: NEUROPATHY PERIPHERAL
     Route: 065
  3. DURAGESIC-100 [Suspect]
     Indication: DIABETES MELLITUS
     Route: 065
  4. DURAGESIC-100 [Suspect]
     Indication: PAIN
     Route: 065

REACTIONS (1)
  - PALPITATIONS [None]
